FAERS Safety Report 20668221 (Version 1)
Quarter: 2022Q2

REPORT INFORMATION
  Report Type: Spontaneous
  Country: IT (occurrence: IT)
  Receive Date: 20220404
  Receipt Date: 20220404
  Transmission Date: 20220720
  Serious: Yes (Other)
  Sender: FDA-Public Use
  Company Number: IT-MLMSERVICE-20211220-3280930-1

PATIENT
  Age: 38 Year
  Sex: Female
  Weight: 80 kg

DRUGS (20)
  1. DEXAMETHASONE [Suspect]
     Active Substance: DEXAMETHASONE
     Indication: COVID-19
     Route: 065
     Dates: start: 2021, end: 2021
  2. DEXAMETHASONE [Suspect]
     Active Substance: DEXAMETHASONE
     Indication: COVID-19
     Route: 065
     Dates: start: 2021
  3. DEXAMETHASONE [Suspect]
     Active Substance: DEXAMETHASONE
     Route: 065
     Dates: start: 2021
  4. QUERCETIN [Concomitant]
     Active Substance: QUERCETIN
     Indication: COVID-19
     Route: 065
     Dates: start: 2021
  5. VITAMIN B12 [Concomitant]
     Active Substance: CYANOCOBALAMIN
     Indication: COVID-19
     Route: 065
     Dates: start: 2021
  6. CEFDITOREN [Concomitant]
     Active Substance: CEFDITOREN
     Indication: COVID-19
     Route: 065
     Dates: start: 2021
  7. ENOXAPARIN [Concomitant]
     Active Substance: ENOXAPARIN
     Indication: COVID-19
     Route: 065
     Dates: start: 2021
  8. ENOXAPARIN [Concomitant]
     Active Substance: ENOXAPARIN
     Route: 065
     Dates: start: 2021
  9. LACTOFERRIN [Concomitant]
     Active Substance: LACTOFERRIN
     Indication: COVID-19
     Route: 065
     Dates: start: 2021
  10. KCL [Concomitant]
     Active Substance: POTASSIUM CHLORIDE
     Indication: COVID-19
     Route: 065
     Dates: start: 2021
  11. FAMOTIDINE [Concomitant]
     Active Substance: FAMOTIDINE
     Indication: COVID-19
     Route: 065
     Dates: start: 2021
  12. VITAMIN D [Concomitant]
     Active Substance: VITAMIN D NOS
     Indication: COVID-19
     Route: 065
     Dates: start: 2021
  13. VITAMIN D [Concomitant]
     Active Substance: VITAMIN D NOS
     Route: 065
     Dates: start: 2021
  14. POLIDATINA [Concomitant]
     Indication: COVID-19
     Route: 065
     Dates: start: 2021
  15. MENAQUINONE 6 [Concomitant]
     Active Substance: MENAQUINONE 6
     Indication: COVID-19
     Route: 065
     Dates: start: 2021
  16. VITAMIN C [Concomitant]
     Active Substance: ASCORBIC ACID
     Indication: COVID-19
     Route: 065
     Dates: start: 2021
  17. ZINC PIDOLATE [Concomitant]
     Active Substance: ZINC PIDOLATE
     Indication: COVID-19
     Route: 065
     Dates: start: 2021
  18. OXYGEN [Concomitant]
     Active Substance: OXYGEN
     Indication: Oxygen saturation decreased
     Route: 065
  19. LORAZEPAM [Concomitant]
     Active Substance: LORAZEPAM
     Indication: Psychotic disorder
     Route: 065
  20. LORAZEPAM [Concomitant]
     Active Substance: LORAZEPAM
     Route: 065

REACTIONS (2)
  - Adrenal suppression [Recovering/Resolving]
  - Substance-induced psychotic disorder [Unknown]

NARRATIVE: CASE EVENT DATE: 20210101
